APPROVED DRUG PRODUCT: CROTAN
Active Ingredient: CROTAMITON
Strength: 10%
Dosage Form/Route: LOTION;TOPICAL
Application: A087204 | Product #001 | TE Code: AT
Applicant: LEGACY PHARMA INC
Approved: Approved Prior to Jan 1, 1982 | RLD: No | RS: No | Type: RX